FAERS Safety Report 10016385 (Version 1)
Quarter: 2014Q1

REPORT INFORMATION
  Report Type: Spontaneous
  Country: US (occurrence: US)
  Receive Date: 20140317
  Receipt Date: 20140317
  Transmission Date: 20141002
  Serious: Yes (Other)
  Sender: FDA-Public Use
  Company Number: US-PFIZER INC-2014074179

PATIENT
  Age: 41 Year
  Sex: Female
  Weight: 44.9 kg

DRUGS (4)
  1. PRISTIQ [Suspect]
     Indication: DEPRESSION
     Dosage: 50 MG, DAILY
  2. PRISTIQ [Suspect]
     Dosage: 100 MG, DAILY
  3. PRISTIQ [Suspect]
     Dosage: 50 MG, DAILY
  4. XANAX [Concomitant]
     Indication: SOCIAL PHOBIA
     Dosage: 1 MG, DAILY

REACTIONS (3)
  - Meniscus injury [Unknown]
  - Chondropathy [Unknown]
  - Confusional state [Unknown]
